FAERS Safety Report 15013136 (Version 1)
Quarter: 2018Q2

REPORT INFORMATION
  Report Type: Spontaneous
  Country: JP (occurrence: JP)
  Receive Date: 20180614
  Receipt Date: 20180614
  Transmission Date: 20180711
  Serious: Yes (Other)
  Sender: FDA-Public Use
  Company Number: JP-SHIRE-JP201821545

PATIENT

DRUGS (2)
  1. DENOSINE [Concomitant]
     Active Substance: GANCICLOVIR
     Indication: PRODUCT USED FOR UNKNOWN INDICATION
  2. LIALDA [Suspect]
     Active Substance: MESALAMINE
     Indication: COLITIS ULCERATIVE
     Dosage: 3600 MG, 1X/DAY:QD
     Route: 048
     Dates: start: 20180314, end: 20180319

REACTIONS (1)
  - Large intestinal ulcer [Unknown]

NARRATIVE: CASE EVENT DATE: 20180319
